FAERS Safety Report 8763967 (Version 1)
Quarter: 2012Q4

REPORT INFORMATION
  Report Type: 
  Country: US (occurrence: US)
  Receive Date: 20120831
  Receipt Date: 20120831
  Transmission Date: 20130627
  Serious: Yes (Disabling, Other)
  Sender: FDA-Public Use
  Company Number: US-US-EMD SERONO, INC.-7095359

PATIENT
  Sex: Female
  Weight: 63 kg

DRUGS (8)
  1. REBIF [Suspect]
     Indication: RELAPSING-REMITTING MULTIPLE SCLEROSIS
     Route: 058
     Dates: start: 20080421
  2. BACLOFEN [Concomitant]
     Indication: MUSCLE SPASTICITY
  3. LYRICA [Concomitant]
     Indication: DYSAESTHESIA
  4. LYRICA [Concomitant]
     Indication: LHERMITTE^S SIGN
  5. AMPYRA [Concomitant]
     Indication: MULTIPLE SCLEROSIS
  6. AMPYRA [Concomitant]
     Indication: GAIT DISTURBANCE
  7. VITAMIN B12 [Concomitant]
     Indication: SUPPLEMENTATION THERAPY
  8. IBUPROFEN [Concomitant]
     Indication: PREMEDICATION

REACTIONS (7)
  - Blindness [Not Recovered/Not Resolved]
  - Macular degeneration [Not Recovered/Not Resolved]
  - Urinary hesitation [Unknown]
  - Vitamin D decreased [Unknown]
  - Automatic bladder [Recovering/Resolving]
  - Urinary tract infection [Recovering/Resolving]
  - Paraesthesia [Unknown]
